FAERS Safety Report 10405172 (Version 2)
Quarter: 2014Q3

REPORT INFORMATION
  Report Type: Spontaneous
  Country: US (occurrence: None)
  Receive Date: 20140820
  Receipt Date: 20140905
  Transmission Date: 20150326
  Serious: Yes (Hospitalization)
  Sender: FDA-Public Use
  Company Number: QSC-2014-0524

PATIENT
  Age: 20 Year
  Sex: Female
  Weight: 71.1 kg

DRUGS (6)
  1. PREDNISONE. [Concomitant]
     Active Substance: PREDNISONE
  2. ATORVASTATIN [Concomitant]
     Active Substance: ATORVASTATIN
  3. CELLCEPT /01275102/ (MYCOPHENOLATE MOFETIL) [Concomitant]
  4. H.P. ACTHAR [Suspect]
     Active Substance: CORTICOTROPIN
     Indication: LUPUS NEPHRITIS
     Dosage: 80 UNITS, BIW FOR 4 WEEKS
     Route: 030
     Dates: start: 20140708, end: 2014
  5. WARFARIN [Concomitant]
     Active Substance: WARFARIN
  6. PLAQUENIL /00072602/ (HYDROXYCHLORIDE PHOSPHATE) [Concomitant]

REACTIONS (4)
  - Renal failure [None]
  - Urinary tract infection [None]
  - Renal failure acute [None]
  - Pharyngeal mass [None]

NARRATIVE: CASE EVENT DATE: 20140719
